FAERS Safety Report 5124219-X (Version None)
Quarter: 2006Q4

REPORT INFORMATION
  Report Type: 
  Country: None (occurrence: None)
  Receive Date: 20061010
  Receipt Date: 20060925
  Transmission Date: 20070319
  Serious: Yes (Hospitalization)
  Sender: FDA-Public Use
  Company Number: US-JNJFOC-20060105317

PATIENT
  Sex: Female

DRUGS (5)
  1. ORTHO EVRA [Suspect]
     Indication: CONTRACEPTION
     Route: 062
  2. SPRINTEC 28 [Suspect]
     Indication: CONTRACEPTION
     Route: 048
  3. ESSURE SYSTEM [Suspect]
     Indication: CONTRACEPTION
  4. ORTHO CYCLEN-28 [Concomitant]
  5. ANTIBIOTICS [Concomitant]

REACTIONS (1)
  - UTERINE HAEMORRHAGE [None]
